FAERS Safety Report 8014279-0 (Version None)
Quarter: 2011Q4

REPORT INFORMATION
  Report Type: 
  Country: None (occurrence: None)
  Receive Date: 20111229
  Receipt Date: 20111221
  Transmission Date: 20120403
  Serious: Yes (Other)
  Sender: FDA-Public Use
  Company Number: JP-GLAXOSMITHKLINE-B0771428A

PATIENT

DRUGS (2)
  1. FLUTICASONE PROPIONATE/SALMETEROL [Suspect]
     Dosage: 100MCG PER DAY
     Route: 055
  2. FLUTICASONE PROPIONATE/SALMETEROL [Suspect]
     Indication: ASTHMA
     Dosage: 200MCG PER DAY
     Route: 055

REACTIONS (2)
  - ASTHMA [None]
  - STOMATITIS [None]
